FAERS Safety Report 4845982-9 (Version None)
Quarter: 2005Q4

REPORT INFORMATION
  Report Type: 
  Country: None (occurrence: None)
  Receive Date: 20051206
  Receipt Date: 20051125
  Transmission Date: 20060501
  Serious: Yes (Hospitalization)
  Sender: FDA-Public Use
  Company Number: DE-JNJFOC-20051106053

PATIENT
  Age: 69 Year
  Sex: Female
  Weight: 50 kg

DRUGS (4)
  1. INFLIXIMAB [Suspect]
     Route: 042
  2. VERAPAMIL HCL [Concomitant]
     Route: 048
     Dates: start: 20020101
  3. LOSARTAN [Concomitant]
     Route: 065
  4. HYDROCHLOROTHIAZIDE [Concomitant]
     Route: 048
     Dates: start: 20020101

REACTIONS (2)
  - OSTEOSCLEROSIS [None]
  - SUDDEN HEARING LOSS [None]
